FAERS Safety Report 24136587 (Version 1)
Quarter: 2024Q3

REPORT INFORMATION
  Report Type: Spontaneous
  Country: JP (occurrence: JP)
  Receive Date: 20240725
  Receipt Date: 20240725
  Transmission Date: 20241017
  Serious: Yes (Death, Hospitalization, Other)
  Sender: PFIZER
  Company Number: JP-PFIZER INC-PV202400096738

PATIENT
  Age: 8 Decade
  Sex: Male

DRUGS (1)
  1. TAFAMIDIS [Suspect]
     Active Substance: TAFAMIDIS
     Dosage: 61 MG, DAILY
     Route: 048
     Dates: start: 2023

REACTIONS (3)
  - Cardiac failure [Fatal]
  - Fracture [Unknown]
  - Sepsis [Unknown]

NARRATIVE: CASE EVENT DATE: 20240723
